FAERS Safety Report 25140159 (Version 1)
Quarter: 2025Q1

REPORT INFORMATION
  Report Type: Spontaneous
  Country: US (occurrence: US)
  Receive Date: 20250331
  Receipt Date: 20250331
  Transmission Date: 20250409
  Serious: Yes (Disabling)
  Sender: AMGEN
  Company Number: US-AMGEN-USASP2025058402

PATIENT
  Age: 73 Year
  Sex: Female

DRUGS (12)
  1. TAVNEOS [Suspect]
     Active Substance: AVACOPAN
     Indication: Anti-neutrophil cytoplasmic antibody positive vasculitis
     Dosage: 30 MILLIGRAM, BID/TWICE DAILY
     Route: 065
     Dates: start: 20250201
  2. PREDNISONE [Suspect]
     Active Substance: PREDNISONE
     Indication: Anti-neutrophil cytoplasmic antibody positive vasculitis
     Route: 065
  3. PREDNISONE [Suspect]
     Active Substance: PREDNISONE
     Dosage: 15 MILLIGRAM, BID/ WEANED DOWN -5 MG TAKING THREE IN THE MORNING AND THREE IN THE EVENING
     Route: 065
     Dates: start: 20250302
  4. EZETIMIBE [Concomitant]
     Active Substance: EZETIMIBE
     Dosage: 10 MILLIGRAM, QD
     Route: 065
  5. FARXIGA [Concomitant]
     Active Substance: DAPAGLIFLOZIN PROPANEDIOL
     Route: 065
  6. LACOSAMIDE [Concomitant]
     Active Substance: LACOSAMIDE
     Dosage: 50 MILLIGRAM, BID (EVERY MORNING AND 50 MG EVERY EVENING )
     Route: 065
  7. SULFAMETHOXAZOLE\TRIMETHOPRIM [Concomitant]
     Active Substance: SULFAMETHOXAZOLE\TRIMETHOPRIM
     Route: 065
  8. OLMESARTAN [Concomitant]
     Active Substance: OLMESARTAN
     Route: 065
  9. CALCITRIOL [Concomitant]
     Active Substance: CALCITRIOL
  10. LIVALO [Concomitant]
     Active Substance: PITAVASTATIN CALCIUM
     Dosage: 2 MILLIGRAM, QD
  11. CALCIUM [Concomitant]
     Active Substance: CALCIUM
  12. FISH OIL [Concomitant]
     Active Substance: FISH OIL

REACTIONS (4)
  - Gait disturbance [Unknown]
  - Arthralgia [Recovered/Resolved]
  - Paraesthesia [Unknown]
  - Burning sensation [Recovered/Resolved]

NARRATIVE: CASE EVENT DATE: 20250101
